FAERS Safety Report 9976165 (Version 1)
Quarter: 2014Q1

REPORT INFORMATION
  Report Type: Report from Study
  Country: US (occurrence: US)
  Receive Date: 20140306
  Receipt Date: 20140306
  Transmission Date: 20141002
  Serious: No
  Sender: FDA-Public Use
  Company Number: US-ABBVIE-13P-163-1166900-00

PATIENT
  Sex: Female
  Weight: 115.77 kg

DRUGS (8)
  1. HUMIRA [Suspect]
     Indication: PSORIASIS
     Route: 058
     Dates: start: 2010, end: 201301
  2. HUMIRA [Suspect]
     Route: 058
     Dates: start: 201309
  3. MULTIVITAMIN [Concomitant]
     Indication: VITAMIN SUPPLEMENTATION
     Route: 048
  4. LOSARTAN / HYDROCHLOROTHIAZID STADA [Concomitant]
     Indication: HYPERTENSION
     Route: 048
     Dates: start: 201309
  5. LEVOTHYROXINE [Concomitant]
     Indication: HYPOTHYROIDISM
     Route: 048
  6. CITALOPRAM [Concomitant]
     Indication: ANXIETY
     Route: 048
  7. FOLIC ACID [Concomitant]
     Indication: VITAMIN SUPPLEMENTATION
     Route: 048
  8. GLUCOTROL [Concomitant]
     Indication: DIABETES MELLITUS
     Route: 048
     Dates: start: 2007

REACTIONS (5)
  - Rash papular [Recovered/Resolved]
  - Hyperkeratosis [Recovered/Resolved]
  - Purulent discharge [Recovered/Resolved]
  - Bloody discharge [Recovered/Resolved]
  - Hypertension [Not Recovered/Not Resolved]
